FAERS Safety Report 14541512 (Version 1)
Quarter: 2018Q1

REPORT INFORMATION
  Report Type: Spontaneous
  Country: FR (occurrence: FR)
  Receive Date: 20180216
  Receipt Date: 20180216
  Transmission Date: 20180509
  Serious: Yes (Other)
  Sender: FDA-Public Use
  Company Number: FR-OTSUKA-DJ20091392

PATIENT

DRUGS (3)
  1. TERCIAN [Suspect]
     Active Substance: CYAMEMAZINE
     Indication: PSYCHOTIC DISORDER
     Route: 065
     Dates: end: 20090318
  2. ABILIFY [Suspect]
     Active Substance: ARIPIPRAZOLE
     Indication: PSYCHOTIC DISORDER
     Route: 065
  3. VALIUM [Suspect]
     Active Substance: DIAZEPAM
     Indication: PSYCHOTIC DISORDER
     Route: 065

REACTIONS (3)
  - Cholangitis [Not Recovered/Not Resolved]
  - Antinuclear antibody [Not Recovered/Not Resolved]
  - Smooth muscle antibody [Not Recovered/Not Resolved]

NARRATIVE: CASE EVENT DATE: 200903
